FAERS Safety Report 18875109 (Version 2)
Quarter: 2021Q2

REPORT INFORMATION
  Report Type: Spontaneous
  Country: US (occurrence: US)
  Receive Date: 20210210
  Receipt Date: 20210408
  Transmission Date: 20210717
  Serious: No
  Sender: FDA-Public Use
  Company Number: US-ASTRAZENECA-2021A026889

PATIENT
  Age: 4593 Week
  Sex: Male
  Weight: 86.2 kg

DRUGS (9)
  1. PLAVIX [Concomitant]
     Active Substance: CLOPIDOGREL BISULFATE
     Indication: STENT PLACEMENT
     Route: 048
  2. VITAMIN B12 [Concomitant]
     Active Substance: CYANOCOBALAMIN
     Indication: DIABETES MELLITUS
     Route: 048
     Dates: start: 2020
  3. VALSARTAN. [Concomitant]
     Active Substance: VALSARTAN
     Indication: CEREBROVASCULAR ACCIDENT
     Dosage: 160.0MG UNKNOWN
     Route: 048
     Dates: start: 202003
  4. BYDUREON BCISE [Suspect]
     Active Substance: EXENATIDE
     Indication: BLOOD GLUCOSE INCREASED
     Route: 058
     Dates: start: 20210129
  5. NOVOLOG [Concomitant]
     Active Substance: INSULIN ASPART
     Indication: DIABETES MELLITUS
  6. METOPROLOL. [Suspect]
     Active Substance: METOPROLOL
     Indication: DIABETES MELLITUS
     Route: 048
     Dates: start: 202003
  7. LIPITOR [Concomitant]
     Active Substance: ATORVASTATIN CALCIUM
     Route: 048
     Dates: start: 2020
  8. ASPIRIN. [Concomitant]
     Active Substance: ASPIRIN
     Route: 048
     Dates: start: 2020
  9. LANTUS [Concomitant]
     Active Substance: INSULIN GLARGINE
     Indication: DIABETES MELLITUS
     Dates: start: 2020

REACTIONS (5)
  - Incorrect dose administered by device [Unknown]
  - Device operational issue [Unknown]
  - Blood glucose abnormal [Unknown]
  - Device issue [Unknown]
  - Device leakage [Unknown]

NARRATIVE: CASE EVENT DATE: 20210129
